FAERS Safety Report 10068351 (Version 1)
Quarter: 2014Q2

REPORT INFORMATION
  Report Type: Spontaneous
  Country: US (occurrence: US)
  Receive Date: 20140409
  Receipt Date: 20140409
  Transmission Date: 20141212
  Serious: No
  Sender: FDA-Public Use
  Company Number: US-PFIZER INC-2014096963

PATIENT
  Age: 53 Year
  Sex: Female
  Weight: 86.17 kg

DRUGS (8)
  1. GABAPENTIN [Suspect]
     Indication: NEURALGIA
     Dosage: UNK
     Route: 048
     Dates: start: 2010, end: 2010
  2. TENORETIC [Concomitant]
     Dosage: 50/25MG HALF A TABLET, 1X/DAY
  3. OMEPRAZOLE [Concomitant]
     Dosage: 40 MG, 2X/DAY
  4. ASPIRIN [Concomitant]
     Dosage: 81 MG, UNK
  5. FLUOXETINE [Concomitant]
     Dosage: 60 MG, 1X/DAY
  6. ATORVASTATIN [Concomitant]
     Dosage: 80 MG, 1X/DAY
  7. NORCO [Concomitant]
     Dosage: 7.5/325 MG, 3X/DAY
  8. ACYCLOVIR [Concomitant]
     Dosage: 200 MG, UNK

REACTIONS (2)
  - Confusional state [Unknown]
  - Feeling abnormal [Unknown]
